FAERS Safety Report 7987815-8 (Version None)
Quarter: 2011Q4

REPORT INFORMATION
  Report Type: 
  Country: None (occurrence: None)
  Receive Date: 20111216
  Receipt Date: 20101110
  Transmission Date: 20120403
  Serious: No
  Sender: FDA-Public Use
  Company Number: US-BRISTOL-MYERS SQUIBB COMPANY-15378342

PATIENT
  Age: 42 Year
  Sex: Female
  Weight: 61 kg

DRUGS (7)
  1. CYMBALTA [Concomitant]
  2. LEVOTHYROXINE SODIUM [Concomitant]
  3. ABILIFY [Suspect]
     Indication: AFFECTIVE DISORDER
     Dates: start: 20101105, end: 20101107
  4. IBUPROFEN [Concomitant]
  5. DIAZEPAM [Concomitant]
     Indication: PANIC ATTACK
  6. IMITREX [Concomitant]
  7. PHENERGAN [Concomitant]

REACTIONS (2)
  - VOMITING [None]
  - SOMNAMBULISM [None]
